FAERS Safety Report 10081128 (Version 1)
Quarter: 2014Q2

REPORT INFORMATION
  Report Type: Spontaneous
  Country: US (occurrence: US)
  Receive Date: 20140416
  Receipt Date: 20140416
  Transmission Date: 20141212
  Serious: Yes (Death)
  Sender: FDA-Public Use
  Company Number: US-PFIZER INC-2014104889

PATIENT
  Age: 71 Year
  Sex: Female

DRUGS (5)
  1. INLYTA [Suspect]
     Dosage: 5 MG, 2X/DAY (TAKE 1 TABLET BY MOUTH EVERY 12 HOURS)
     Route: 048
  2. DEXAMETHASON [Concomitant]
     Dosage: 1.5 MG, UNK
  3. NORVASC [Concomitant]
     Dosage: 2.5 MG, UNK
  4. MORPHINE SULFATE [Concomitant]
     Dosage: 50 MG, UNK ER
  5. OXYCODONE [Concomitant]
     Dosage: 10 MG, UNK

REACTIONS (1)
  - Death [Fatal]
